FAERS Safety Report 15904629 (Version 1)
Quarter: 2019Q1

REPORT INFORMATION
  Report Type: Report from Study
  Country: None (occurrence: US)
  Receive Date: 20190204
  Receipt Date: 20190204
  Transmission Date: 20190417
  Serious: Yes (Death)
  Sender: FDA-Public Use
  Company Number: US-ABBVIE-19K-163-2650219-00

PATIENT
  Age: 80 Year
  Sex: Male

DRUGS (1)
  1. VENCLEXTA [Suspect]
     Active Substance: VENETOCLAX
     Indication: MASTOCYTIC LEUKAEMIA
     Route: 048
     Dates: start: 20180521

REACTIONS (1)
  - Death [Fatal]

NARRATIVE: CASE EVENT DATE: 20190116
